FAERS Safety Report 21722066 (Version 1)
Quarter: 2022Q4

REPORT INFORMATION
  Report Type: Spontaneous
  Country: US (occurrence: None)
  Receive Date: 20221212
  Receipt Date: 20221212
  Transmission Date: 20230113
  Serious: Yes (Hospitalization)
  Sender: FDA-Public Use
  Company Number: None

PATIENT
  Sex: Male
  Weight: 95.71 kg

DRUGS (21)
  1. ABIRATERONE ACETATE [Suspect]
     Active Substance: ABIRATERONE ACETATE
     Indication: Prostate cancer
     Dosage: FREQUENCY : DAILY;?
     Route: 048
     Dates: start: 202107
  2. AMLODIPINE [Concomitant]
  3. ATIVAN [Concomitant]
     Indication: Prostate cancer
     Dosage: FREQUENCY : DAILY;?
     Route: 048
     Dates: start: 202107
  4. DIPHENHYDRAMINE [Concomitant]
  5. AMLODIPINE [Concomitant]
  6. ATIVAN [Concomitant]
  7. BICALUTAMIDE [Concomitant]
  8. CARVEDILOL [Concomitant]
     Active Substance: CARVEDILOL
  9. CYMBALTA [Concomitant]
  10. DOCETAXEL [Concomitant]
  11. DECADRON [Concomitant]
     Active Substance: DEXAMETHASONE
  12. DEXAMETHASONE [Concomitant]
  13. DIPHENHYDRAMINE [Concomitant]
  14. FAMOTIDINE [Concomitant]
  15. HYDROCODONE AND ACETAMINOPHEN [Concomitant]
  16. LORAZEPAM [Concomitant]
  17. MIDODRINE [Concomitant]
  18. ONDANSETRON [Concomitant]
  19. PALONOSETRON [Concomitant]
  20. PREDNISONE [Concomitant]
  21. PROCHLORAZINE [Concomitant]

REACTIONS (2)
  - Aortic valve replacement [None]
  - Cerebrovascular accident [None]
